FAERS Safety Report 6097257-0 (Version None)
Quarter: 2009Q1

REPORT INFORMATION
  Report Type: 
  Country: None (occurrence: None)
  Receive Date: 20090227
  Receipt Date: 20090218
  Transmission Date: 20090719
  Serious: Yes (Other)
  Sender: FDA-Public Use
  Company Number: IT-ABBOTT-09P-083-0497279-00

PATIENT
  Sex: Female

DRUGS (1)
  1. HUMIRA [Suspect]
     Indication: CROHN'S DISEASE
     Route: 058
     Dates: start: 20080301, end: 20081101

REACTIONS (3)
  - ADENOSQUAMOUS CELL LUNG CANCER [None]
  - LUNG NEOPLASM MALIGNANT [None]
  - SQUAMOUS CELL CARCINOMA [None]
